FAERS Safety Report 4955653-6 (Version None)
Quarter: 2006Q1

REPORT INFORMATION
  Report Type: 
  Country: None (occurrence: None)
  Receive Date: 20060328
  Receipt Date: 20050829
  Transmission Date: 20060701
  Serious: Yes (Hospitalization)
  Sender: FDA-Public Use
  Company Number: US-MERCK-0508USA04906

PATIENT
  Age: 66 Year
  Sex: Male
  Weight: 89 kg

DRUGS (5)
  1. VIOXX [Suspect]
     Indication: BACK PAIN
     Route: 048
     Dates: start: 20020101, end: 20040101
  2. TOPROL-XL [Concomitant]
     Route: 065
  3. SINEMET [Concomitant]
     Route: 048
  4. CARDURA [Concomitant]
     Route: 065
  5. PROSCAR [Concomitant]
     Route: 048

REACTIONS (4)
  - CARDIAC DISORDER [None]
  - CEREBROVASCULAR ACCIDENT [None]
  - OVERDOSE [None]
  - SURGERY [None]
